FAERS Safety Report 18607360 (Version 3)
Quarter: 2021Q1

REPORT INFORMATION
  Report Type: Report from Study
  Country: US (occurrence: US)
  Receive Date: 20201211
  Receipt Date: 20210202
  Transmission Date: 20210419
  Serious: Yes (Hospitalization)
  Sender: FDA-Public Use
  Company Number: US-TAKEDA-US201939952

PATIENT
  Age: 40 Year
  Sex: Female

DRUGS (8)
  1. TEDUGLUTIDE [Suspect]
     Active Substance: TEDUGLUTIDE
     Dosage: 0.3107 UNK, QD
     Route: 058
     Dates: start: 20180907
  2. TEDUGLUTIDE [Suspect]
     Active Substance: TEDUGLUTIDE
     Dosage: 0.3107 UNK, QD
     Route: 058
     Dates: start: 20180907
  3. TEDUGLUTIDE [Suspect]
     Active Substance: TEDUGLUTIDE
     Indication: SHORT-BOWEL SYNDROME
     Dosage: 0.3107 UNK, QD
     Route: 058
     Dates: start: 19800907
  4. TEDUGLUTIDE [Suspect]
     Active Substance: TEDUGLUTIDE
     Indication: SHORT-BOWEL SYNDROME
     Dosage: 0.3107 UNK, QD
     Route: 058
     Dates: start: 19800907
  5. TEDUGLUTIDE [Suspect]
     Active Substance: TEDUGLUTIDE
     Indication: SHORT-BOWEL SYNDROME
     Dosage: 0.3107 UNK, QD
     Route: 058
     Dates: start: 19800907
  6. TEDUGLUTIDE [Suspect]
     Active Substance: TEDUGLUTIDE
     Dosage: 0.3107 UNK, QD
     Route: 058
     Dates: start: 20180907
  7. TEDUGLUTIDE [Suspect]
     Active Substance: TEDUGLUTIDE
     Indication: SHORT-BOWEL SYNDROME
     Dosage: 0.3107 UNK, QD
     Route: 058
     Dates: start: 19800907
  8. TEDUGLUTIDE [Suspect]
     Active Substance: TEDUGLUTIDE
     Dosage: 0.3107 UNK, QD
     Route: 058
     Dates: start: 20180907

REACTIONS (5)
  - Blood magnesium decreased [Unknown]
  - Dehydration [Unknown]
  - Blood potassium decreased [Unknown]
  - Product dose omission issue [Recovered/Resolved]
  - Vomiting [Recovered/Resolved]

NARRATIVE: CASE EVENT DATE: 20201101
